FAERS Safety Report 14711534 (Version 2)
Quarter: 2018Q2

REPORT INFORMATION
  Report Type: Spontaneous
  Country: US (occurrence: US)
  Receive Date: 20180403
  Receipt Date: 20180517
  Transmission Date: 20180711
  Serious: No
  Sender: FDA-Public Use
  Company Number: US-TELIGENT, INC-IGIL20180187

PATIENT
  Sex: Male

DRUGS (1)
  1. TRIAMCINOLONE ACTEONIDE [Suspect]
     Active Substance: TRIAMCINOLONE ACETONIDE
     Indication: PRODUCT USED FOR UNKNOWN INDICATION
     Route: 061
     Dates: start: 201802

REACTIONS (2)
  - Pain in extremity [Recovered/Resolved]
  - Product container issue [None]

NARRATIVE: CASE EVENT DATE: 201802
